FAERS Safety Report 10438891 (Version 1)
Quarter: 2014Q3

REPORT INFORMATION
  Report Type: Spontaneous
  Country: FR (occurrence: None)
  Receive Date: 20140904
  Receipt Date: 20140904
  Transmission Date: 20150326
  Serious: Yes (Hospitalization)
  Sender: FDA-Public Use
  Company Number: ABR_01789_2014

PATIENT
  Age: 28 Year
  Sex: Female

DRUGS (2)
  1. ERYTHROCINE [Suspect]
     Active Substance: ERYTHROMYCIN
     Indication: URETHRITIS UREAPLASMAL
     Route: 048
     Dates: start: 20140801, end: 20140802
  2. OFLOCET [Suspect]
     Active Substance: OFLOXACIN
     Indication: URETHRITIS UREAPLASMAL
     Dosage: [FREQUENCY UNKNOWN; 3 DF IN TOTAL] OTHER)
     Dates: start: 20140801, end: 20140802

REACTIONS (3)
  - Hepatocellular injury [None]
  - Cholestasis [None]
  - Chest pain [None]

NARRATIVE: CASE EVENT DATE: 20140801
